FAERS Safety Report 20430184 (Version 1)
Quarter: 2022Q1

REPORT INFORMATION
  Report Type: Report from Study
  Country: US (occurrence: US)
  Receive Date: 20220204
  Receipt Date: 20220204
  Transmission Date: 20220424
  Serious: Yes (Life-Threatening, Hospitalization)
  Sender: FDA-Public Use
  Company Number: US-SERVIER-S20000114

PATIENT

DRUGS (8)
  1. ONCASPAR [Suspect]
     Active Substance: PEGASPARGASE
     Indication: T-cell type acute leukaemia
     Dosage: UNK
     Route: 065
     Dates: end: 20191126
  2. VINCRISTINE [Suspect]
     Active Substance: VINCRISTINE
     Indication: T-cell type acute leukaemia
     Dosage: 2 MG/M2, DAY 1 OF EACH 3-WEEK CYCLE
     Route: 042
     Dates: start: 20190115, end: 20191231
  3. DEXAMETHASONE [Suspect]
     Active Substance: DEXAMETHASONE
     Indication: T-cell type acute leukaemia
     Dosage: 6 MG/M2 DAYS 1-5 OF EACH 3-WEEK CYCLE
     Route: 048
     Dates: start: 20190112, end: 20200104
  4. MERCAPTOPURINE [Suspect]
     Active Substance: MERCAPTOPURINE
     Indication: T-cell type acute leukaemia
     Dosage: 50 MG/M2, DAYS 1-14 OF EACH 3-WEEK CYCLE
     Route: 048
     Dates: start: 20190507, end: 20200104
  5. METHOTREXATE [Suspect]
     Active Substance: METHOTREXATE
     Indication: T-cell type acute leukaemia
     Dosage: 12 MG EVERY 9 WEEKS
     Route: 037
     Dates: start: 20190128, end: 20191112
  6. METHOTREXATE [Suspect]
     Active Substance: METHOTREXATE
     Dosage: 30 MG/M2 DAYS 1,8,15 OF EACH 3-WEEK CYCLE
     Route: 042
     Dates: start: 20191204, end: 20200104
  7. CYTARABINE [Suspect]
     Active Substance: CYTARABINE
     Indication: T-cell type acute leukaemia
     Dosage: 20 MG EVERY 9 WEEKS
     Route: 037
     Dates: start: 20190110, end: 20191112
  8. HYDROCORTISONE [Suspect]
     Active Substance: HYDROCORTISONE
     Indication: T-cell type acute leukaemia
     Dosage: 9 MG EVERY 9 WEEKS
     Route: 037
     Dates: start: 20190128, end: 20191112

REACTIONS (5)
  - Pancreatitis necrotising [Recovering/Resolving]
  - Embolism [Recovering/Resolving]
  - Intra-abdominal haemorrhage [Recovering/Resolving]
  - Hypovolaemic shock [Recovered/Resolved]
  - Hypoxia [Recovering/Resolving]

NARRATIVE: CASE EVENT DATE: 20200105
